FAERS Safety Report 16517770 (Version 1)
Quarter: 2019Q3

REPORT INFORMATION
  Report Type: Spontaneous
  Country: US (occurrence: US)
  Receive Date: 20190702
  Receipt Date: 20190702
  Transmission Date: 20191004
  Serious: Yes (Other)
  Sender: FDA-Public Use
  Company Number: US-MYLANLABS-2019M1059087

PATIENT
  Age: 67 Year
  Sex: Male

DRUGS (1)
  1. COLD-EEZE? COLD REMEDY [Suspect]
     Active Substance: ZINC GLUCONATE
     Indication: DYSPHAGIA
     Dosage: UNK
     Route: 065
     Dates: start: 20181130

REACTIONS (4)
  - Dysphagia [Recovering/Resolving]
  - Facial paralysis [Unknown]
  - Off label use [Not Recovered/Not Resolved]
  - Therapeutic response unexpected [Unknown]

NARRATIVE: CASE EVENT DATE: 20190331
